FAERS Safety Report 5483800-9 (Version None)
Quarter: 2007Q4

REPORT INFORMATION
  Report Type: 
  Country: None (occurrence: None)
  Receive Date: 20071012
  Receipt Date: 20071010
  Transmission Date: 20080405
  Serious: Yes (Hospitalization)
  Sender: FDA-Public Use
  Company Number: B0489424A

PATIENT
  Sex: Male
  Weight: 63 kg

DRUGS (7)
  1. PAXIL [Suspect]
     Indication: DEPRESSION
     Dosage: 10MG PER DAY
     Route: 048
     Dates: start: 20070125
  2. ZOLPIDEM [Concomitant]
     Route: 048
     Dates: start: 20070125
  3. UNKNOWN DRUG [Concomitant]
     Indication: HEPATITIS C
     Route: 058
  4. UNKNOWN DRUG [Concomitant]
     Route: 065
  5. RIBAVIRIN [Concomitant]
     Route: 065
  6. REBETOL [Concomitant]
     Route: 048
  7. ROHYPNOL [Concomitant]
     Route: 065

REACTIONS (16)
  - ALTERED STATE OF CONSCIOUSNESS [None]
  - AMYOTROPHY [None]
  - ANTIDIURETIC HORMONE ABNORMALITY [None]
  - BLOOD SODIUM INCREASED [None]
  - DIZZINESS [None]
  - DYSURIA [None]
  - ENCEPHALITIS [None]
  - HEADACHE [None]
  - HYPONATRAEMIA [None]
  - INAPPROPRIATE ANTIDIURETIC HORMONE SECRETION [None]
  - MENINGITIS [None]
  - MYDRIASIS [None]
  - NUCHAL RIGIDITY [None]
  - PYREXIA [None]
  - RESTLESSNESS [None]
  - URINARY RETENTION [None]
